FAERS Safety Report 25367230 (Version 2)
Quarter: 2025Q2

REPORT INFORMATION
  Report Type: Spontaneous
  Country: FR (occurrence: FR)
  Receive Date: 20250528
  Receipt Date: 20250606
  Transmission Date: 20250717
  Serious: Yes (Other)
  Sender: RANBAXY
  Company Number: FR-SUN PHARMACEUTICAL INDUSTRIES LTD-2025R1-508953

PATIENT
  Age: 30 Year
  Sex: Female

DRUGS (2)
  1. ASPIRIN [Suspect]
     Active Substance: ASPIRIN
     Indication: Hypofibrinogenaemia
     Dosage: 75 MILLIGRAM, DAILY
     Route: 065
  2. ENOXAPARIN SODIUM [Suspect]
     Active Substance: ENOXAPARIN SODIUM
     Indication: Hypofibrinogenaemia
     Dosage: 4000 IU INTERNATIONAL UNIT(S), QD
     Route: 065

REACTIONS (5)
  - Amniotic cavity infection [Unknown]
  - Exposure during pregnancy [Unknown]
  - Placenta accreta [Unknown]
  - Premature delivery [Unknown]
  - Uterine scar [Unknown]
